FAERS Safety Report 5991956-4 (Version None)
Quarter: 2008Q4

REPORT INFORMATION
  Report Type: 
  Country: None (occurrence: None)
  Receive Date: 20081211
  Receipt Date: 20081204
  Transmission Date: 20090506
  Serious: Yes (Other)
  Sender: FDA-Public Use
  Company Number: CN-ROXANE LABORATORIES, INC.-2008-RO-00362RO

PATIENT
  Age: 42 Year
  Sex: Female

DRUGS (4)
  1. METHOTREXATE [Suspect]
     Indication: GESTATIONAL TROPHOBLASTIC TUMOUR
     Route: 030
     Dates: start: 20070311
  2. PREDNISONE TAB [Concomitant]
     Indication: PLEURISY
     Dosage: 15MG
  3. PREDNISONE TAB [Concomitant]
     Indication: PLEURAL EFFUSION
  4. LEVOFLOXACIN [Concomitant]
     Indication: PYREXIA
     Dosage: 400MG
     Route: 042

REACTIONS (3)
  - PLEURAL EFFUSION [None]
  - PLEURISY [None]
  - PNEUMONITIS [None]
